FAERS Safety Report 8773848 (Version 1)
Quarter: 2012Q4

REPORT INFORMATION
  Report Type: 
  Country: AU (occurrence: AU)
  Receive Date: 20120907
  Receipt Date: 20120907
  Transmission Date: 20130627
  Serious: Yes (Hospitalization)
  Sender: FDA-Public Use
  Company Number: AU-ASTRAZENECA-2012SE65676

PATIENT
  Age: 39 Year
  Sex: Female

DRUGS (6)
  1. PROPOFOL [Suspect]
     Route: 042
     Dates: start: 20120704, end: 20120704
  2. FENTANYL [Suspect]
     Dosage: 100 ug
     Route: 042
     Dates: start: 20120704, end: 20120704
  3. CEPHAZOLIN SODIUM [Suspect]
     Dosage: 1 g
     Route: 042
     Dates: start: 20120704, end: 20120704
  4. MIDAZOLAM [Suspect]
     Dosage: 3 mg
     Route: 042
     Dates: start: 20120704, end: 20120704
  5. PATENT BLUE V [Suspect]
     Route: 042
     Dates: start: 20120704, end: 20120704
  6. ROCURONIUM BROMIDE [Suspect]
     Dosage: 50 mg
     Route: 042
     Dates: start: 20120704, end: 20120704

REACTIONS (5)
  - Tachycardia [Recovered/Resolved]
  - Erythema [Recovered/Resolved]
  - Rash maculo-papular [Recovered/Resolved]
  - Piloerection [Recovered/Resolved]
  - Blood pressure decreased [Recovered/Resolved]
